FAERS Safety Report 4697631-0 (Version None)
Quarter: 2005Q2

REPORT INFORMATION
  Report Type: 
  Country: None (occurrence: None)
  Receive Date: 20050620
  Receipt Date: 20040624
  Transmission Date: 20051028
  Serious: Yes (Hospitalization)
  Sender: FDA-Public Use
  Company Number: 200414842US

PATIENT
  Age: 57 Year
  Sex: Male
  Weight: 87 kg

DRUGS (6)
  1. LANTUS [Suspect]
     Indication: DIABETES MELLITUS NON-INSULIN-DEPENDENT
     Dosage: 22 U QPM
  2. NOVOLOG [Suspect]
     Indication: DIABETES MELLITUS NON-INSULIN-DEPENDENT
  3. METFORMIN HCL [Concomitant]
  4. CHOLESTEROL MEDICATION (NOS) [Concomitant]
  5. ASTHMA MEDICATION (NOS) [Concomitant]
  6. PAIN MEDICATION (NOS) [Concomitant]

REACTIONS (1)
  - BLOOD GLUCOSE DECREASED [None]
